FAERS Safety Report 7853303-2 (Version None)
Quarter: 2011Q4

REPORT INFORMATION
  Report Type: 
  Country: None (occurrence: None)
  Receive Date: 20111026
  Receipt Date: 20111007
  Transmission Date: 20120403
  Serious: No
  Sender: FDA-Public Use
  Company Number: US-BAYER-2011-098879

PATIENT

DRUGS (1)
  1. LEUKINE [Suspect]

REACTIONS (4)
  - FLUSHING [None]
  - RASH [None]
  - NAUSEA [None]
  - DYSPNOEA [None]
